FAERS Safety Report 5228765-X (Version None)
Quarter: 2007Q1

REPORT INFORMATION
  Report Type: 
  Country: None (occurrence: None)
  Receive Date: 20070205
  Receipt Date: 20070124
  Transmission Date: 20070707
  Serious: Yes (Hospitalization, Other)
  Sender: FDA-Public Use
  Company Number: PHBS2007JP01637

PATIENT
  Age: 49 Year
  Sex: Male

DRUGS (7)
  1. LUDIOMIL [Suspect]
     Indication: DEPRESSION
     Dosage: 50 MG/DAY
     Route: 065
  2. LUDIOMIL [Suspect]
     Dosage: 100 MG/DAY
     Route: 065
  3. TRAZODONE HYDROCHLORIDE [Concomitant]
     Indication: DEPRESSION
     Dosage: 100 MG/DAY
     Route: 065
  4. SULPIRIDE [Concomitant]
     Indication: DEPRESSION
     Dosage: 600 MG/DAY
     Route: 065
  5. SULPIRIDE [Concomitant]
     Dosage: 1200 MG/DAY
     Route: 065
  6. AMITRIPTYLINE HYDROCHLORIDE [Concomitant]
     Indication: DEPRESSION
     Dosage: 75 MG/DAY
     Route: 065
  7. AMITRIPTYLINE HYDROCHLORIDE [Concomitant]
     Dosage: 150 MG/DAY
     Route: 065

REACTIONS (8)
  - ANAEMIA [None]
  - DELIRIUM [None]
  - MUSCULAR WEAKNESS [None]
  - NEUROLEPTIC MALIGNANT SYNDROME [None]
  - OEDEMA PERIPHERAL [None]
  - QUADRIPLEGIA [None]
  - RENAL FAILURE ACUTE [None]
  - RHABDOMYOLYSIS [None]
